FAERS Safety Report 15717451 (Version 1)
Quarter: 2018Q4

REPORT INFORMATION
  Report Type: Report from Study
  Country: PL (occurrence: PL)
  Receive Date: 20181213
  Receipt Date: 20181213
  Transmission Date: 20190205
  Serious: Yes (Other)
  Sender: FDA-Public Use
  Company Number: PL-ROCHE-2221636

PATIENT

DRUGS (1)
  1. TOCILIZUMAB. [Suspect]
     Active Substance: TOCILIZUMAB
     Indication: STILL^S DISEASE
     Dosage: TOCILIZUMAB DOSE WAS 12 MG/KG/DOSE EVERY 2 WEEKS IN CHILDREN WEIGHING UNDER 30 KG AND 8 MG/KG/DOSE E
     Route: 042

REACTIONS (6)
  - Hepatotoxicity [Unknown]
  - Neutropenia [Recovered/Resolved]
  - Upper respiratory tract infection [Unknown]
  - Alanine aminotransferase increased [Unknown]
  - Aspartate aminotransferase increased [Unknown]
  - Herpes simplex [Unknown]
